FAERS Safety Report 4951249-0 (Version None)
Quarter: 2006Q1

REPORT INFORMATION
  Report Type: 
  Country: None (occurrence: None)
  Receive Date: 20060317
  Receipt Date: 20060314
  Transmission Date: 20060701
  Serious: Yes (Hospitalization)
  Sender: FDA-Public Use
  Company Number: 20060005USST

PATIENT
  Age: 14 Year
  Sex: Female

DRUGS (1)
  1. NATULAN (PROCARBAZINE HYDROCHLORIDE) CAPSULES [Suspect]
     Dosage: 50 MG PO
     Route: 048
     Dates: start: 20050124

REACTIONS (1)
  - ERYTHEMA MULTIFORME [None]
